FAERS Safety Report 11218514 (Version 3)
Quarter: 2017Q2

REPORT INFORMATION
  Report Type: Spontaneous
  Country: US (occurrence: US)
  Receive Date: 20150625
  Receipt Date: 20170425
  Transmission Date: 20170829
  Serious: No
  Sender: FDA-Public Use
  Company Number: US-PFIZER INC-2015210108

PATIENT
  Age: 4 Year
  Sex: Female

DRUGS (2)
  1. GENOTROPIN [Suspect]
     Active Substance: SOMATROPIN
     Dosage: 1.1 MG, UNK [MONDAY THRU SATURDAY]
     Route: 058
     Dates: start: 20130327
  2. GENOTROPIN [Suspect]
     Active Substance: SOMATROPIN
     Dosage: 0.9 MG, DAILY, 7 DAYS
     Dates: start: 20130819

REACTIONS (3)
  - Off label use [Unknown]
  - Feeling hot [Unknown]
  - Drug dose omission [Unknown]
